FAERS Safety Report 9648731 (Version 1)
Quarter: 2013Q4

REPORT INFORMATION
  Report Type: Spontaneous
  Country: AU (occurrence: AU)
  Receive Date: 20131028
  Receipt Date: 20131028
  Transmission Date: 20140711
  Serious: Yes (Hospitalization)
  Sender: FDA-Public Use
  Company Number: AU-ELI_LILLY_AND_COMPANY-AU201310005001

PATIENT
  Age: 59 Year
  Sex: Male
  Weight: 129 kg

DRUGS (16)
  1. ALIMTA [Suspect]
     Indication: PRODUCT USED FOR UNKNOWN INDICATION
     Dosage: UNK
  2. CARBOPLATIN [Suspect]
     Indication: PRODUCT USED FOR UNKNOWN INDICATION
     Dosage: UNK
     Route: 065
  3. DEXAMETHASONE [Suspect]
     Indication: PRODUCT USED FOR UNKNOWN INDICATION
     Dosage: UNK
     Route: 065
  4. DILAUDID [Suspect]
     Indication: BACK PAIN
     Dosage: 15 MG, UNK
     Route: 065
     Dates: start: 20120712
  5. ASPIRIN [Concomitant]
  6. CLEXANE [Concomitant]
  7. DOCUSATE SODIUM\SENNOSIDES [Concomitant]
  8. COVERSYL [Concomitant]
  9. JURNISTA [Concomitant]
  10. KEFLEX                                  /UNK/ [Concomitant]
  11. LACTULOSE [Concomitant]
  12. LASIX [Concomitant]
  13. NUROFEN [Concomitant]
  14. PANADEINE [Concomitant]
  15. PRAMIN [Concomitant]
  16. SLOW K [Concomitant]

REACTIONS (7)
  - Wound [Unknown]
  - Confusional state [Unknown]
  - Pain in extremity [Unknown]
  - Overdose [Recovered/Resolved]
  - Cellulitis [Unknown]
  - Oedema peripheral [Unknown]
  - Fall [Unknown]
